FAERS Safety Report 19347001 (Version 1)
Quarter: 2021Q2

REPORT INFORMATION
  Report Type: Report from Study
  Country: US (occurrence: US)
  Receive Date: 20210531
  Receipt Date: 20210531
  Transmission Date: 20210717
  Serious: Yes (Other)
  Sender: FDA-Public Use
  Company Number: US-AUROBINDO-AUR-APL-2021-021330

PATIENT
  Age: 65 Year
  Sex: Male

DRUGS (2)
  1. LEDIPASVIR AND SOFOSBUVIR [Suspect]
     Active Substance: LEDIPASVIR\SOFOSBUVIR
     Indication: HEPATITIS C
     Dosage: 90MG/ 400MG
     Route: 048
  2. RIBAVIRIN. [Suspect]
     Active Substance: RIBAVIRIN
     Indication: HEPATITIS C
     Dosage: 400 TO 800 MG/DAY
     Route: 065

REACTIONS (1)
  - Major depression [Unknown]
